FAERS Safety Report 9097935 (Version 1)
Quarter: 2013Q1

REPORT INFORMATION
  Report Type: Spontaneous
  Country: US (occurrence: US)
  Receive Date: 20130212
  Receipt Date: 20130212
  Transmission Date: 20140127
  Serious: No
  Sender: FDA-Public Use
  Company Number: US-PFIZER INC-2013050579

PATIENT
  Age: 6 Year
  Sex: 0

DRUGS (2)
  1. GENOTROPIN [Suspect]
     Dosage: 1 MG, UNK
  2. GENOTROPIN [Suspect]
     Dosage: 1.1 MG, UNK

REACTIONS (1)
  - Injection site pain [Unknown]
